FAERS Safety Report 7398052-2 (Version None)
Quarter: 2011Q2

REPORT INFORMATION
  Report Type: 
  Country: None (occurrence: None)
  Receive Date: 20110406
  Receipt Date: 20110328
  Transmission Date: 20111010
  Serious: Yes (Death)
  Sender: FDA-Public Use
  Company Number: TR-BAXTER-2011BH008745

PATIENT
  Age: 59 Year
  Sex: Female

DRUGS (2)
  1. CORTICOSTEROIDS [Suspect]
     Indication: POLYARTERITIS NODOSA
     Route: 065
  2. CYCLOPHOSPHAMIDE [Suspect]
     Indication: POLYARTERITIS NODOSA
     Route: 042

REACTIONS (2)
  - LEUKOPENIA [None]
  - SEPTIC SHOCK [None]
